FAERS Safety Report 5276123-4 (Version None)
Quarter: 2007Q1

REPORT INFORMATION
  Report Type: 
  Country: None (occurrence: None)
  Receive Date: 20070326
  Receipt Date: 20060907
  Transmission Date: 20070707
  Serious: Yes (Death, Hospitalization)
  Sender: FDA-Public Use
  Company Number: AU-JNJFOC-20060604717

PATIENT
  Sex: Male
  Weight: 63 kg

DRUGS (8)
  1. TMC114 [Suspect]
     Route: 048
  2. TMC114 [Suspect]
     Indication: HIV INFECTION
     Route: 048
  3. RITONAVIR [Suspect]
     Indication: HIV INFECTION
     Route: 048
  4. ABACAVIR [Concomitant]
     Indication: HIV INFECTION
     Route: 048
  5. LAMIVUDINE [Concomitant]
     Indication: HIV INFECTION
     Route: 048
  6. NEVIRAPINE [Concomitant]
     Indication: HIV INFECTION
     Route: 048
  7. TRUVADA [Concomitant]
     Indication: HIV INFECTION
     Route: 048
  8. COTRIMOXAZOLE [Concomitant]
     Indication: ANTIFUNGAL PROPHYLAXIS
     Route: 048

REACTIONS (2)
  - IMMUNE RECONSTITUTION SYNDROME [None]
  - PROGRESSIVE MULTIFOCAL LEUKOENCEPHALOPATHY [None]
